FAERS Safety Report 18953247 (Version 1)
Quarter: 2021Q1

REPORT INFORMATION
  Report Type: Spontaneous
  Country: US (occurrence: US)
  Receive Date: 20210228
  Receipt Date: 20210228
  Transmission Date: 20210420
  Serious: No
  Sender: FDA-Public Use
  Company Number: None

PATIENT
  Age: 60 Year
  Sex: Male

DRUGS (1)
  1. AIMOVIG [Suspect]
     Active Substance: ERENUMAB-AOOE
     Indication: MIGRAINE
     Dosage: ?          OTHER FREQUENCY:ONCE MONTHLY INJEC;OTHER ROUTE:INJECTED INTO STOMACH?
     Dates: start: 20191101, end: 20201001

REACTIONS (6)
  - Constipation [None]
  - Sexual dysfunction [None]
  - Micturition urgency [None]
  - Libido decreased [None]
  - Urine flow decreased [None]
  - Emotional poverty [None]

NARRATIVE: CASE EVENT DATE: 20210101
